FAERS Safety Report 8044704-0 (Version None)
Quarter: 2012Q1

REPORT INFORMATION
  Report Type: 
  Country: None (occurrence: None)
  Receive Date: 20120113
  Receipt Date: 20120110
  Transmission Date: 20120608
  Serious: Yes (Other)
  Sender: FDA-Public Use
  Company Number: US-JNJFOC-20120103296

PATIENT
  Age: 31 Year
  Sex: Male

DRUGS (5)
  1. RISPERDAL [Suspect]
     Route: 048
     Dates: start: 20020101
  2. INVEGA SUSTENNA [Suspect]
     Indication: PRODUCT USED FOR UNKNOWN INDICATION
     Route: 030
  3. RISPERDAL [Suspect]
     Route: 048
  4. RISPERDAL [Suspect]
     Route: 048
  5. RISPERDAL [Suspect]
     Indication: PRODUCT USED FOR UNKNOWN INDICATION
     Route: 048

REACTIONS (3)
  - TARDIVE DYSKINESIA [None]
  - PRODUCT QUALITY ISSUE [None]
  - NONSPECIFIC REACTION [None]
